FAERS Safety Report 4312214-X (Version None)
Quarter: 2004Q1

REPORT INFORMATION
  Report Type: 
  Country: None (occurrence: None)
  Receive Date: 20040305
  Receipt Date: 20030212
  Transmission Date: 20041129
  Serious: Yes (Death)
  Sender: FDA-Public Use
  Company Number: WAES 0302USA01338

PATIENT
  Age: 29 Year
  Sex: Female

DRUGS (2)
  1. [THERAPY UNSPECIFIED] [Concomitant]
  2. FOSAMAX [Suspect]
     Route: 048
     Dates: start: 20021201, end: 20021201

REACTIONS (4)
  - DEATH [None]
  - MEDICATION ERROR [None]
  - OVERDOSE [None]
  - PERIPHERAL COLDNESS [None]
